FAERS Safety Report 17272573 (Version 1)
Quarter: 2020Q1

REPORT INFORMATION
  Report Type: Spontaneous
  Country: US (occurrence: US)
  Receive Date: 20200115
  Receipt Date: 20200115
  Transmission Date: 20200409
  Serious: Yes (Hospitalization)
  Sender: FDA-Public Use
  Company Number: US-WALMART-2079053

PATIENT
  Age: 29 Year
  Sex: Male
  Weight: 100 kg

DRUGS (1)
  1. EQUATE DAYTIME [Suspect]
     Active Substance: ACETAMINOPHEN\DEXTROMETHORPHAN HYDROBROMIDE\PHENYLEPHRINE HYDROCHLORIDE
     Indication: NASOPHARYNGITIS
     Route: 048
     Dates: start: 20191231

REACTIONS (2)
  - Chest pain [None]
  - Abdominal pain upper [None]
